FAERS Safety Report 9555891 (Version 1)
Quarter: 2013Q3

REPORT INFORMATION
  Report Type: Spontaneous
  Country: GB (occurrence: None)
  Receive Date: 20130924
  Receipt Date: 20130924
  Transmission Date: 20140515
  Serious: Yes (Hospitalization)
  Sender: FDA-Public Use
  Company Number: AUR-APL-2013-07812

PATIENT
  Age: 38 Year
  Sex: Male

DRUGS (3)
  1. RISPERIDONE [Suspect]
     Indication: AGITATION
     Route: 048
     Dates: start: 20130626, end: 20130724
  2. LANSOPRAZOLE (LANSOPRAZOLE) [Concomitant]
  3. TRAZODONE (TRAZODONE) [Concomitant]

REACTIONS (3)
  - Aggression [None]
  - Sexually inappropriate behaviour [None]
  - Disinhibition [None]
